FAERS Safety Report 19856473 (Version 1)
Quarter: 2021Q3

REPORT INFORMATION
  Report Type: Spontaneous
  Country: GB (occurrence: GB)
  Receive Date: 20210920
  Receipt Date: 20210920
  Transmission Date: 20211014
  Serious: Yes (Other)
  Sender: FDA-Public Use
  Company Number: GB-MYLANLABS-2021M1062998

PATIENT
  Sex: Male

DRUGS (1)
  1. CLOZARIL [Suspect]
     Active Substance: CLOZAPINE
     Indication: SCHIZOPHRENIA
     Dosage: UNK
     Route: 048
     Dates: start: 20210816, end: 20210909

REACTIONS (4)
  - Heart rate increased [Unknown]
  - Myocarditis [Unknown]
  - Hyperhidrosis [Unknown]
  - Chest pain [Unknown]

NARRATIVE: CASE EVENT DATE: 2021
